FAERS Safety Report 15679794 (Version 2)
Quarter: 2022Q1

REPORT INFORMATION
  Report Type: Spontaneous
  Country: BR (occurrence: BR)
  Receive Date: 20181203
  Receipt Date: 20220128
  Transmission Date: 20220424
  Serious: Yes (Hospitalization)
  Sender: FDA-Public Use
  Company Number: BR-TEVA-2018-BR-982792

PATIENT
  Age: 27 Year
  Sex: Male

DRUGS (3)
  1. ESTRADIOL [Suspect]
     Active Substance: ESTRADIOL
     Indication: Feminisation acquired
     Route: 065
  2. MEDROXYPROGESTERONE ACETATE [Suspect]
     Active Substance: MEDROXYPROGESTERONE ACETATE
     Indication: Feminisation acquired
     Dosage: 50 MILLIGRAM DAILY;
     Route: 065
  3. ALGESTONE [Suspect]
     Active Substance: ALGESTONE
     Indication: Feminisation acquired
     Route: 065

REACTIONS (2)
  - Systemic lupus erythematosus [Recovered/Resolved]
  - Lupus nephritis [Recovered/Resolved]
